FAERS Safety Report 6054331-2 (Version None)
Quarter: 2009Q1

REPORT INFORMATION
  Report Type: 
  Country: None (occurrence: None)
  Receive Date: 20090127
  Receipt Date: 20081204
  Transmission Date: 20090719
  Serious: Yes (Other)
  Sender: FDA-Public Use
  Company Number: US-PFIZER INC-2008151175

PATIENT
  Sex: Female

DRUGS (4)
  1. LYRICA [Suspect]
  2. XANAX [Suspect]
  3. WELLBUTRIN [Suspect]
  4. ALCOHOL [Suspect]

REACTIONS (2)
  - CONVULSION [None]
  - LOSS OF CONSCIOUSNESS [None]
